FAERS Safety Report 4680983-5 (Version None)
Quarter: 2005Q2

REPORT INFORMATION
  Report Type: 
  Country: None (occurrence: None)
  Receive Date: 20050601
  Receipt Date: 20050601
  Transmission Date: 20051028
  Serious: Yes (Other)
  Sender: FDA-Public Use
  Company Number: None

PATIENT
  Age: 71 Year
  Sex: Male
  Weight: 80.7403 kg

DRUGS (1)
  1. VIAGRA [Suspect]
     Dosage: ONCE IN 6 MO
     Dates: start: 20050428, end: 20050428

REACTIONS (2)
  - BLINDNESS [None]
  - CAROTID ARTERY OCCLUSION [None]
